FAERS Safety Report 6687972-X (Version None)
Quarter: 2010Q2

REPORT INFORMATION
  Report Type: 
  Country: None (occurrence: None)
  Receive Date: 20100420
  Receipt Date: 20100413
  Transmission Date: 20101027
  Serious: Yes (Death, Hospitalization, Other)
  Sender: FDA-Public Use
  Company Number: HQWYE701020AUG07

PATIENT
  Sex: Male
  Weight: 65 kg

DRUGS (2)
  1. AMIODARONE [Suspect]
     Indication: NON-OBSTRUCTIVE CARDIOMYOPATHY
     Route: 048
     Dates: start: 20030301
  2. AMIODARONE [Suspect]
     Indication: VENTRICULAR TACHYCARDIA

REACTIONS (5)
  - ACUTE PRERENAL FAILURE [None]
  - BLOOD PRESSURE DECREASED [None]
  - HEPATIC CIRRHOSIS [None]
  - HEPATIC ENCEPHALOPATHY [None]
  - PARKINSONISM [None]
